FAERS Safety Report 17412072 (Version 1)
Quarter: 2020Q1

REPORT INFORMATION
  Report Type: Spontaneous
  Country: IT (occurrence: IT)
  Receive Date: 20200213
  Receipt Date: 20200213
  Transmission Date: 20200409
  Serious: Yes (Hospitalization)
  Sender: FDA-Public Use
  Company Number: IT-TEVA-2020-IT-1185380

PATIENT
  Age: 86 Year
  Sex: Male

DRUGS (9)
  1. TEICOPLANIN [Concomitant]
     Active Substance: TEICOPLANIN
  2. LAMICTAL [Concomitant]
     Active Substance: LAMOTRIGINE
  3. REMERON [Concomitant]
     Active Substance: MIRTAZAPINE
  4. REPAGLINIDE. [Suspect]
     Active Substance: REPAGLINIDE
     Indication: DIABETES MELLITUS
     Dosage: 1 MG
     Route: 048
  5. TAMSULOSIN HYDROCHLORIDE. [Concomitant]
     Active Substance: TAMSULOSIN HYDROCHLORIDE
  6. CETIRIZINE [Concomitant]
     Active Substance: CETIRIZINE HYDROCHLORIDE
  7. LASIX [Concomitant]
     Active Substance: FUROSEMIDE
  8. BISOPROLOL FUMARATE. [Concomitant]
     Active Substance: BISOPROLOL FUMARATE
  9. RIVOTRIL [Concomitant]
     Active Substance: CLONAZEPAM

REACTIONS (2)
  - Hypoglycaemia [Recovering/Resolving]
  - Loss of consciousness [Recovering/Resolving]

NARRATIVE: CASE EVENT DATE: 20200112
